FAERS Safety Report 21919501 (Version 2)
Quarter: 2023Q2

REPORT INFORMATION
  Report Type: Spontaneous
  Country: US (occurrence: US)
  Receive Date: 20230127
  Receipt Date: 20230529
  Transmission Date: 20230722
  Serious: No
  Sender: FDA-Public Use
  Company Number: US-BRISTOL-MYERS SQUIBB COMPANY-2023-012160

PATIENT
  Age: 94 Year
  Sex: Female
  Weight: 48.99 kg

DRUGS (1)
  1. REVLIMID [Suspect]
     Active Substance: LENALIDOMIDE
     Indication: Diffuse large B-cell lymphoma
     Dosage: FREQ: 3 WEEKS ON, 1 WEEK OFF
     Route: 048

REACTIONS (3)
  - COVID-19 [Unknown]
  - Off label use [Unknown]
  - Adverse event [Unknown]
